FAERS Safety Report 4897047-8 (Version None)
Quarter: 2006Q1

REPORT INFORMATION
  Report Type: 
  Country: None (occurrence: None)
  Receive Date: 20060127
  Receipt Date: 20060116
  Transmission Date: 20060701
  Serious: Yes (Hospitalization)
  Sender: FDA-Public Use
  Company Number: 2006-00016

PATIENT
  Age: 74 Year
  Sex: Male

DRUGS (3)
  1. TRELSTAR [Suspect]
     Indication: PROSTATE CANCER
     Dosage: 11.25 MG, SINGLE, INTRAMUSCULAR
     Route: 030
     Dates: start: 20050913, end: 20050913
  2. CSE INHIBITOR NOS [Concomitant]
  3. ATI BLOCKER NOS [Concomitant]

REACTIONS (2)
  - IMMUNE SYSTEM DISORDER [None]
  - POLYMYOSITIS [None]
